FAERS Safety Report 7764813-0 (Version None)
Quarter: 2011Q3

REPORT INFORMATION
  Report Type: 
  Country: None (occurrence: None)
  Receive Date: 20110919
  Receipt Date: 20110902
  Transmission Date: 20111222
  Serious: Yes (Disabling)
  Sender: FDA-Public Use
  Company Number: THQ2011A05585

PATIENT
  Age: 66 Year
  Sex: Female

DRUGS (5)
  1. LANSOPRAZOLE [Suspect]
     Indication: PRODUCT USED FOR UNKNOWN INDICATION
  2. LEVOTHYROXINE [Concomitant]
  3. ATORVASTATIN [Concomitant]
  4. ASPIRIN [Concomitant]
  5. DICLOFENAC SODIUM [Concomitant]

REACTIONS (6)
  - DIARRHOEA [None]
  - DECREASED APPETITE [None]
  - RASH [None]
  - ABDOMINAL PAIN [None]
  - MALAISE [None]
  - PYREXIA [None]
